FAERS Safety Report 7663329-X (Version None)
Quarter: 2011Q3

REPORT INFORMATION
  Report Type: 
  Country: None (occurrence: None)
  Receive Date: 20110805
  Receipt Date: 20100813
  Transmission Date: 20111222
  Serious: No
  Sender: FDA-Public Use
  Company Number: US-ABBOTT-10P-163-0664107-00

PATIENT
  Sex: Female
  Weight: 67.192 kg

DRUGS (3)
  1. LIPITOR [Concomitant]
     Indication: CORONARY ARTERY DISEASE
  2. NIASPAN [Suspect]
     Indication: CORONARY ARTERY DISEASE
     Dates: start: 20100601
  3. NIASPAN [Suspect]
     Indication: CORONARY ARTERY DISEASE
     Dates: start: 20100601, end: 20100601

REACTIONS (3)
  - FEELING HOT [None]
  - ERYTHEMA [None]
  - PARAESTHESIA [None]
